FAERS Safety Report 6236200-8 (Version None)
Quarter: 2009Q2

REPORT INFORMATION
  Report Type: 
  Country: None (occurrence: None)
  Receive Date: 20090619
  Receipt Date: 20090615
  Transmission Date: 20091009
  Serious: Yes (Death, Hospitalization)
  Sender: FDA-Public Use
  Company Number: AU-CELGENEUS-008-20785-09060096

PATIENT
  Sex: Male
  Weight: 84 kg

DRUGS (2)
  1. THALIDOMIDE [Suspect]
     Route: 048
     Dates: start: 20090331, end: 20090504
  2. VIDAZA [Suspect]
     Route: 058
     Dates: start: 20090331, end: 20090406

REACTIONS (2)
  - ACUTE MYELOID LEUKAEMIA [None]
  - FEBRILE NEUTROPENIA [None]
